FAERS Safety Report 8854356 (Version 2)
Quarter: 2015Q3

REPORT INFORMATION
  Report Type: Report from Study
  Country: US (occurrence: US)
  Receive Date: 20121023
  Receipt Date: 20150908
  Transmission Date: 20151125
  Serious: Yes (Death)
  Sender: FDA-Public Use
  Company Number: US-ROCHE-1133087

PATIENT
  Sex: Female

DRUGS (2)
  1. RAPTIVA [Suspect]
     Active Substance: EFALIZUMAB
     Indication: PUSTULAR PSORIASIS
     Dosage: 90 MG
     Route: 058
     Dates: start: 20071106, end: 20080826
  2. RAPTIVA [Suspect]
     Active Substance: EFALIZUMAB
     Indication: PSORIASIS
     Route: 058
     Dates: end: 20080826

REACTIONS (7)
  - Death [Fatal]
  - Pruritus [Unknown]
  - Skin exfoliation [Unknown]
  - Drug ineffective [Unknown]
  - Pain in extremity [Unknown]
  - Depression [Unknown]
  - Pain of skin [Unknown]
